FAERS Safety Report 10186563 (Version 1)
Quarter: 2014Q2

REPORT INFORMATION
  Report Type: Spontaneous
  Country: US (occurrence: US)
  Receive Date: 20140521
  Receipt Date: 20140521
  Transmission Date: 20141212
  Serious: Yes (Hospitalization, Other)
  Sender: FDA-Public Use
  Company Number: US-BAXTER-2014BAX025798

PATIENT
  Age: 48 Year
  Sex: Female
  Weight: 72.64 kg

DRUGS (12)
  1. GAMMAGARD LIQUID [Suspect]
     Indication: SELECTIVE IGG SUBCLASS DEFICIENCY
     Dosage: TOTAL MONTHLY DOSE DIVIDED INTO 3 SMALLER DOSES EVERY 10 DAYS
     Route: 042
     Dates: start: 201401, end: 201402
  2. GAMMAGARD LIQUID [Suspect]
     Dosage: DOSE INCREASED, ADDITIONAL 50 ML BOTTLE
     Route: 042
     Dates: start: 20140301, end: 20140301
  3. ^OCTOGARD^ [Concomitant]
     Indication: PRODUCT USED FOR UNKNOWN INDICATION
     Route: 042
     Dates: start: 20140317
  4. DYCLOPINE [Concomitant]
     Indication: PREMEDICATION
     Dosage: 30 MG (3-10 MG) BEFORE GGL INFUSION
     Route: 048
     Dates: start: 201310
  5. METHOTREXATE [Concomitant]
     Indication: PREMEDICATION
     Dosage: BEFORE GGL INFUSION
     Route: 048
     Dates: start: 201312
  6. ZOFRAN [Concomitant]
     Indication: PREMEDICATION
     Route: 048
     Dates: start: 2010
  7. ZOFRAN [Concomitant]
     Dosage: BEFORE GGL INFUSION
     Route: 048
  8. PHENERGAN [Concomitant]
     Indication: PREMEDICATION
     Route: 048
     Dates: start: 2010
  9. PHENERGAN [Concomitant]
     Dosage: BEFORE GGL INFUSION
     Route: 048
  10. PERCOCET [Concomitant]
     Indication: PREMEDICATION
     Dosage: 5/325 MG
     Route: 048
     Dates: start: 2010
  11. PERCOCET [Concomitant]
     Dosage: 5/325 MG, BEFORE GGL INFUSION (REPEAT AS NEEDED X1)
     Route: 048
  12. ATENOLOL [Concomitant]
     Indication: PRODUCT USED FOR UNKNOWN INDICATION
     Route: 048
     Dates: start: 2010

REACTIONS (12)
  - Headache [Not Recovered/Not Resolved]
  - Abdominal pain [Not Recovered/Not Resolved]
  - Vomiting [Not Recovered/Not Resolved]
  - Back pain [Recovering/Resolving]
  - Nausea [Recovering/Resolving]
  - Deep vein thrombosis [Recovering/Resolving]
  - Pulmonary embolism [Recovering/Resolving]
  - Dyspnoea [Recovering/Resolving]
  - Hyperhidrosis [Unknown]
  - Dizziness [Recovering/Resolving]
  - Asthenia [Recovering/Resolving]
  - Pallor [Recovering/Resolving]
